FAERS Safety Report 11342253 (Version 1)
Quarter: 2015Q3

REPORT INFORMATION
  Report Type: Spontaneous
  Country: JP (occurrence: JP)
  Receive Date: 20150805
  Receipt Date: 20150805
  Transmission Date: 20151125
  Serious: Yes (Death)
  Sender: FDA-Public Use
  Company Number: JP-PFIZER INC-2015248640

PATIENT
  Age: 6 Decade
  Sex: Male

DRUGS (1)
  1. SUTENT [Suspect]
     Active Substance: SUNITINIB MALATE
     Indication: RENAL CELL CARCINOMA
     Dosage: 37.5 MG, DAILY
     Route: 048
     Dates: end: 20150703

REACTIONS (4)
  - Renal cell carcinoma [Fatal]
  - Disease progression [Fatal]
  - Respiratory failure [Fatal]
  - Pleural effusion [Fatal]

NARRATIVE: CASE EVENT DATE: 20150723
